FAERS Safety Report 23918331 (Version 2)
Quarter: 2024Q2

REPORT INFORMATION
  Report Type: Spontaneous
  Country: FR (occurrence: FR)
  Receive Date: 20240530
  Receipt Date: 20240613
  Transmission Date: 20240716
  Serious: Yes (Death, Other)
  Sender: FDA-Public Use
  Company Number: FR-AFSSAPS-SE2024000403

PATIENT
  Age: 76 Year
  Sex: Female

DRUGS (6)
  1. ATORVASTATIN [Suspect]
     Active Substance: ATORVASTATIN
     Indication: Product used for unknown indication
     Dosage: UNK
     Route: 065
  2. AMLODIPINE [Suspect]
     Active Substance: AMLODIPINE BESYLATE
     Indication: Product used for unknown indication
     Dosage: UNK
     Route: 065
  3. FUROSEMIDE [Suspect]
     Active Substance: FUROSEMIDE
     Indication: Product used for unknown indication
     Dosage: UNK
     Route: 065
  4. INDAPAMIDE [Suspect]
     Active Substance: INDAPAMIDE
     Indication: Product used for unknown indication
     Dosage: UNK
     Route: 065
  5. SOTALOL [Suspect]
     Active Substance: SOTALOL
     Indication: Arrhythmia
     Dosage: 160 MILLIGRAM, ONCE A DAY (80MG (1-0-1))
     Route: 048
     Dates: start: 20240220, end: 20240312
  6. APIXABAN [Concomitant]
     Active Substance: APIXABAN
     Indication: Product used for unknown indication
     Dosage: 10 MILLIGRAM, ONCE A DAY
     Route: 065

REACTIONS (3)
  - Ventricular arrhythmia [Fatal]
  - Failure to suspend medication [Fatal]
  - Product administered by wrong person [Fatal]

NARRATIVE: CASE EVENT DATE: 20240312
